FAERS Safety Report 5121163-9 (Version None)
Quarter: 2006Q4

REPORT INFORMATION
  Report Type: 
  Country: None (occurrence: None)
  Receive Date: 20061002
  Receipt Date: 20060921
  Transmission Date: 20070319
  Serious: Yes (Other)
  Sender: FDA-Public Use
  Company Number: 230217

PATIENT
  Age: 12 Year
  Sex: Female
  Weight: 34.5 kg

DRUGS (2)
  1. NUTROPIN AQ [Suspect]
     Indication: TURNER'S SYNDROME
     Dosage: 3.2 MG, 7/WEEK, SUBCUTANEOUS
     Route: 058
     Dates: start: 19970701
  2. ESTRADIOL [Concomitant]

REACTIONS (1)
  - FACIAL PALSY [None]
